FAERS Safety Report 16154473 (Version 4)
Quarter: 2019Q3

REPORT INFORMATION
  Report Type: Spontaneous
  Country: US (occurrence: US)
  Receive Date: 20190403
  Receipt Date: 20190822
  Transmission Date: 20191004
  Serious: Yes (Hospitalization)
  Sender: FDA-Public Use
  Company Number: US-ACTELION-A-NJ2018-167224

PATIENT
  Age: 73 Year
  Sex: Female

DRUGS (4)
  1. VELETRI [Suspect]
     Active Substance: EPOPROSTENOL
     Indication: PULMONARY ARTERIAL HYPERTENSION
     Dosage: 17.9 NG/KG, PER MIN
     Route: 042
     Dates: start: 20150511
  2. VELETRI [Suspect]
     Active Substance: EPOPROSTENOL
     Dosage: 17.5 NG/KG, PER MIN
     Route: 042
     Dates: start: 20160407
  3. VELETRI [Suspect]
     Active Substance: EPOPROSTENOL
     Dosage: 17.3 NG/KG, PER MIN
     Route: 042
  4. VELETRI [Suspect]
     Active Substance: EPOPROSTENOL
     Dosage: 15.3 NG/KG, PER MIN
     Route: 042
     Dates: start: 20150411

REACTIONS (8)
  - Haematochezia [Unknown]
  - Hip fracture [Unknown]
  - Pain in jaw [Unknown]
  - Hospitalisation [Not Recovered/Not Resolved]
  - Dyspnoea [Unknown]
  - Headache [Recovered/Resolved]
  - Diarrhoea [Recovered/Resolved]
  - Sinusitis [Unknown]

NARRATIVE: CASE EVENT DATE: 20180104
